FAERS Safety Report 9890979 (Version 3)
Quarter: 2014Q2

REPORT INFORMATION
  Report Type: Spontaneous
  Country: IT (occurrence: None)
  Receive Date: 20140210
  Receipt Date: 20140626
  Transmission Date: 20141212
  Serious: Yes (Other)
  Sender: FDA-Public Use
  Company Number: AUR-APL-2014-01367

PATIENT
  Age: 57 Year
  Sex: Female

DRUGS (3)
  1. BISOPROLOL [Suspect]
     Indication: HYPERTENSION
     Dosage: TOTAL
     Route: 048
     Dates: start: 20131113, end: 20131211
  2. ANASTROZOLE [Suspect]
     Indication: BREAST CANCER
     Route: 048
     Dates: start: 20131113, end: 20131213
  3. TAMOXIFEN CITRATE [Concomitant]

REACTIONS (10)
  - Oropharyngeal pain [None]
  - Pyrexia [None]
  - Influenza [None]
  - Dysphagia [None]
  - Dyspnoea [None]
  - Laryngeal oedema [None]
  - Musculoskeletal pain [None]
  - Dyspepsia [None]
  - Pruritus [None]
  - Ocular hyperaemia [None]
